FAERS Safety Report 11301139 (Version 1)
Quarter: 2015Q3

REPORT INFORMATION
  Report Type: Spontaneous
  Country: US (occurrence: US)
  Receive Date: 20150722
  Receipt Date: 20150722
  Transmission Date: 20151125
  Serious: No
  Sender: FDA-Public Use
  Company Number: US-ELI_LILLY_AND_COMPANY-US201108008846

PATIENT
  Age: 14 Year

DRUGS (2)
  1. ARGININE [Concomitant]
     Active Substance: ARGININE
     Dosage: UNK UNK, QD
  2. HUMATROPE [Suspect]
     Active Substance: SOMATROPIN
     Indication: GROWTH HORMONE DEFICIENCY
     Dosage: 2 MG 6X A WEEK
     Route: 058
     Dates: start: 201107, end: 20110821

REACTIONS (2)
  - Arthralgia [Unknown]
  - Joint swelling [Unknown]

NARRATIVE: CASE EVENT DATE: 20110820
